FAERS Safety Report 4332790-0 (Version None)
Quarter: 2004Q2

REPORT INFORMATION
  Report Type: 
  Country: None (occurrence: None)
  Receive Date: 20040406
  Receipt Date: 20040325
  Transmission Date: 20050107
  Serious: Yes (Death, Life-Threatening)
  Sender: FDA-Public Use
  Company Number: FR-BRISTOL-MYERS SQUIBB COMPANY-12550737

PATIENT
  Age: 57 Year
  Sex: Female

DRUGS (12)
  1. ENDOXAN [Suspect]
     Indication: NON-HODGKIN'S LYMPHOMA
     Route: 042
     Dates: start: 20010213, end: 20010330
  2. ADRIBLASTINE [Suspect]
     Indication: NON-HODGKIN'S LYMPHOMA
     Route: 042
     Dates: start: 20010213, end: 20010330
  3. BLEOMYCIN [Suspect]
     Indication: NON-HODGKIN'S LYMPHOMA
     Route: 042
     Dates: start: 20010213, end: 20010330
  4. VINDESINE [Suspect]
     Indication: NON-HODGKIN'S LYMPHOMA
     Route: 042
     Dates: start: 20010213, end: 20010330
  5. PREDNISONE [Suspect]
     Indication: NON-HODGKIN'S LYMPHOMA
     Route: 048
     Dates: start: 20010213, end: 20010330
  6. MABTHERA [Suspect]
     Indication: NON-HODGKIN'S LYMPHOMA
     Route: 042
     Dates: start: 20010828, end: 20010919
  7. METHOTREXATE [Concomitant]
     Dates: start: 20010428, end: 20010514
  8. CARMUSTINE [Concomitant]
     Dosage: DAY 4
  9. VEPESID [Concomitant]
  10. NOVANTRONE [Concomitant]
  11. FLUOROURACIL [Concomitant]
     Dates: start: 20020415
  12. CISPLATIN [Concomitant]
     Dates: start: 20020415

REACTIONS (6)
  - GASTRIC NEOPLASM [None]
  - GASTROINTESTINAL CARCINOMA [None]
  - PERITONEAL CARCINOMA [None]
  - RESPIRATORY DISTRESS [None]
  - SUBILEUS [None]
  - TREATMENT RELATED SECONDARY MALIGNANCY [None]
